FAERS Safety Report 4664251-3 (Version None)
Quarter: 2005Q2

REPORT INFORMATION
  Report Type: 
  Country: None (occurrence: None)
  Receive Date: 20050516
  Receipt Date: 20050428
  Transmission Date: 20051028
  Serious: Yes (Death)
  Sender: FDA-Public Use
  Company Number: S03-IRL-00692-01

PATIENT
  Sex: Female

DRUGS (9)
  1. CITALOPRAM HYDROBROMIDE [Suspect]
     Indication: DEPRESSION
     Dosage: 60 MG QD PO
     Route: 048
  2. CITALOPRAM HYDROBROMIDE [Suspect]
     Indication: OBSESSIVE-COMPULSIVE DISORDER
     Dosage: 60 MG QD PO
     Route: 048
  3. PHENOTHIAZINE [Concomitant]
  4. CARBAMAZEPINE [Concomitant]
  5. CLONAZEPAM [Concomitant]
  6. LAMOTRIGINE [Concomitant]
  7. LIORESIL (BACLOFEN) [Concomitant]
  8. OLANZAPINE [Concomitant]
  9. CLOPIXOL (ZUCLOPENTHIXOL DECANOATE) [Concomitant]

REACTIONS (10)
  - CARDIAC DISORDER [None]
  - CHOKING [None]
  - CYANOSIS [None]
  - DRUG LEVEL INCREASED [None]
  - FOREIGN BODY TRAUMA [None]
  - INJURY ASPHYXIATION [None]
  - LARYNGEAL OBSTRUCTION [None]
  - LOSS OF CONSCIOUSNESS [None]
  - RESUSCITATION [None]
  - SUDDEN DEATH [None]
